FAERS Safety Report 22600411 (Version 1)
Quarter: 2023Q2

REPORT INFORMATION
  Report Type: Report from Study
  Country: BR (occurrence: None)
  Receive Date: 20230614
  Receipt Date: 20230614
  Transmission Date: 20230721
  Serious: Yes (Other)
  Sender: FDA-Public Use
  Company Number: BR-Merck Healthcare KGaA-9408125

PATIENT
  Age: 35 Year
  Sex: Female

DRUGS (1)
  1. MAVENCLAD [Suspect]
     Active Substance: CLADRIBINE
     Indication: Multiple sclerosis
     Dosage: YEAR ONE MONTH ONE THERAPY: 2 TABS ON 17, 18, 19, 21, 24, 25, 26 AND 29 APR 2023
     Route: 048
     Dates: start: 20230417, end: 20230426

REACTIONS (6)
  - Myocardial oedema [Unknown]
  - Cardiac disorder [Unknown]
  - Generalised oedema [Unknown]
  - Decreased immune responsiveness [Recovered/Resolved]
  - Fatigue [Unknown]
  - Anaemia [Unknown]

NARRATIVE: CASE EVENT DATE: 20230531
